FAERS Safety Report 5483218-9 (Version None)
Quarter: 2007Q4

REPORT INFORMATION
  Report Type: 
  Country: None (occurrence: None)
  Receive Date: 20071009
  Receipt Date: 20070923
  Transmission Date: 20080405
  Serious: No
  Sender: FDA-Public Use
  Company Number: 013184

PATIENT
  Age: 52 Year
  Sex: Female

DRUGS (2)
  1. PRIALT [Suspect]
     Indication: PAIN
     Dosage: 0.21 UG, ONCE/HOUR, INTRATHECAL
     Route: 037
     Dates: start: 20070827
  2. DOMEPERIDONE (DOMEPERIDONE) [Concomitant]

REACTIONS (1)
  - LIVER FUNCTION TEST ABNORMAL [None]
